FAERS Safety Report 25083277 (Version 1)
Quarter: 2025Q1

REPORT INFORMATION
  Report Type: Report from Study
  Country: NO (occurrence: NO)
  Receive Date: 20250317
  Receipt Date: 20250317
  Transmission Date: 20250409
  Serious: Yes (Other)
  Sender: ORGANON
  Company Number: NO-009507513-2010NOR001424

PATIENT
  Sex: Male

DRUGS (1)
  1. FINASTERIDE [Suspect]
     Active Substance: FINASTERIDE
     Indication: Product used for unknown indication
     Route: 048
     Dates: start: 2010

REACTIONS (5)
  - Lichen planopilaris [Unknown]
  - Alopecia [Unknown]
  - Erectile dysfunction [Unknown]
  - Suspected counterfeit product [Unknown]
  - Therapeutic response decreased [Unknown]

NARRATIVE: CASE EVENT DATE: 20130101
